FAERS Safety Report 8895635 (Version 2)
Quarter: 2012Q4

REPORT INFORMATION
  Report Type: 
  Country: US (occurrence: US)
  Receive Date: 20121108
  Receipt Date: 20121112
  Transmission Date: 20130627
  Serious: Yes (Hospitalization)
  Sender: FDA-Public Use
  Company Number: US-BAYER-2012-117037

PATIENT
  Sex: Female

DRUGS (6)
  1. ALEVE CAPLET/TABLET,MIDOL EXTENDED RELIEF CAPLET [Suspect]
     Indication: ARTHRITIS
     Dosage: 2 DF, QD
     Route: 048
     Dates: start: 2007, end: 20121101
  2. ALEVE CAPLET/TABLET,MIDOL EXTENDED RELIEF CAPLET [Suspect]
     Indication: ARTHRITIS
     Dosage: 2 DF, QD
     Route: 048
     Dates: start: 2007
  3. INSULIN [Concomitant]
  4. DIABETIC MEDICATION [Concomitant]
  5. RHEUMATOID ARTHRITIS MEDICATION [Concomitant]
  6. BLOOD PRESSURE MEDICATION [Concomitant]

REACTIONS (4)
  - Gastrooesophageal reflux disease [None]
  - Drug ineffective [None]
  - Incorrect drug administration duration [None]
  - Incorrect drug administration duration [None]
